FAERS Safety Report 6541305-8 (Version None)
Quarter: 2010Q1

REPORT INFORMATION
  Report Type: 
  Country: None (occurrence: None)
  Receive Date: 20100118
  Receipt Date: 20100112
  Transmission Date: 20100710
  Serious: Yes (Hospitalization)
  Sender: FDA-Public Use
  Company Number: US-EISAI INC.-E2090-00964-SPO-US

PATIENT
  Sex: Female
  Weight: 107.7 kg

DRUGS (4)
  1. ZONEGRAN [Suspect]
     Dosage: UNKNOWN
     Route: 048
     Dates: start: 20040101
  2. ZONEGRAN [Suspect]
     Route: 048
  3. VALIUM [Concomitant]
     Indication: ANXIETY
  4. VIMPAT [Concomitant]
     Dates: start: 20090901, end: 20090101

REACTIONS (8)
  - CONVULSION [None]
  - DACRYOSTENOSIS ACQUIRED [None]
  - FATIGUE [None]
  - NEPHROLITHIASIS [None]
  - RASH [None]
  - VISION BLURRED [None]
  - VOMITING [None]
  - WEIGHT DECREASED [None]
